FAERS Safety Report 4432393-3 (Version None)
Quarter: 2004Q3

REPORT INFORMATION
  Report Type: 
  Country: None (occurrence: None)
  Receive Date: 20040825
  Receipt Date: 20040518
  Transmission Date: 20050211
  Serious: Yes (Life-Threatening)
  Sender: FDA-Public Use
  Company Number: JP-GLAXOSMITHKLINE-B0333314A

PATIENT
  Age: 66 Year
  Sex: Female

DRUGS (7)
  1. PAXIL [Suspect]
     Indication: DEPRESSION
     Dosage: 10MG TWICE PER DAY
     Route: 048
     Dates: end: 20040410
  2. RITALIN [Suspect]
     Indication: DEPRESSION
     Dosage: 3U THREE TIMES PER DAY
     Route: 048
     Dates: end: 20040409
  3. TETRAMIDE [Suspect]
     Indication: DEPRESSION
     Dosage: 30MG PER DAY
     Route: 048
     Dates: end: 20040409
  4. AMOXAN [Suspect]
     Indication: DEPRESSION
     Dosage: 25MG THREE TIMES PER DAY
     Route: 048
     Dates: end: 20040409
  5. DEPAS [Suspect]
     Indication: DEPRESSION
     Dosage: 1MG PER DAY
     Route: 048
     Dates: end: 20040409
  6. ROHYPNOL [Suspect]
     Indication: DEPRESSION
     Dosage: 2MG PER DAY
     Route: 048
     Dates: end: 20040409
  7. SEPAZON [Suspect]
     Indication: DEPRESSION
     Dosage: 2MG THREE TIMES PER DAY
     Route: 048
     Dates: end: 20040409

REACTIONS (17)
  - BLOOD PRESSURE DECREASED [None]
  - COAGULOPATHY [None]
  - CYANOSIS [None]
  - DEPRESSED LEVEL OF CONSCIOUSNESS [None]
  - DISSEMINATED INTRAVASCULAR COAGULATION [None]
  - EMPYEMA [None]
  - GLOSSOPTOSIS [None]
  - HYPERPYREXIA [None]
  - INFECTION [None]
  - MULTI-ORGAN FAILURE [None]
  - MYOCLONUS [None]
  - MYOGLOBINURIA [None]
  - NEUROLEPTIC MALIGNANT SYNDROME [None]
  - RESPIRATORY FAILURE [None]
  - SEROTONIN SYNDROME [None]
  - SHOCK [None]
  - SOMNOLENCE [None]
